FAERS Safety Report 8502593-1 (Version None)
Quarter: 2012Q3

REPORT INFORMATION
  Report Type: 
  Country: None (occurrence: None)
  Receive Date: 20120711
  Receipt Date: 20120706
  Transmission Date: 20120928
  Serious: Yes (Other)
  Sender: FDA-Public Use
  Company Number: BR-PFIZER INC-2012162564

PATIENT
  Age: 67 Year
  Sex: Female

DRUGS (6)
  1. ALPRAZOLAM [Suspect]
     Indication: DEPRESSION
     Dosage: UNK
     Route: 048
  2. PONDERA [Concomitant]
     Indication: DEPRESSION
     Dosage: ONE TABLET DAILY
     Dates: start: 20090101
  3. PONDERA [Concomitant]
     Indication: ANXIETY
  4. LEVOTHYROXINE SODIUM [Concomitant]
     Indication: THYROID DISORDER
     Dosage: 25 MG, IN THE MORNING
  5. ALPRAZOLAM [Suspect]
     Dosage: UNK
  6. LEVOTHYROXINE SODIUM [Concomitant]
     Dosage: 75 MG, IN THE MORNING

REACTIONS (5)
  - DYSPNOEA [None]
  - BLINDNESS [None]
  - BLOOD CHOLESTEROL INCREASED [None]
  - EMOTIONAL DISORDER [None]
  - DRUG INEFFECTIVE [None]
